FAERS Safety Report 4510228-8 (Version None)
Quarter: 2004Q4

REPORT INFORMATION
  Report Type: 
  Country: None (occurrence: None)
  Receive Date: 20041124
  Receipt Date: 20040309
  Transmission Date: 20050328
  Serious: Yes (Life-Threatening, Hospitalization)
  Sender: FDA-Public Use
  Company Number: SE-ROCHE-361058

PATIENT
  Age: 41 Year
  Sex: Female

DRUGS (41)
  1. MYCOPHENOLATE MOFETIL [Suspect]
     Route: 042
     Dates: start: 20040222, end: 20040222
  2. MYCOPHENOLATE MOFETIL [Suspect]
     Route: 042
     Dates: start: 20040223, end: 20040226
  3. MYCOPHENOLATE MOFETIL [Suspect]
     Route: 048
     Dates: start: 20040227, end: 20040305
  4. TACROLIMUS [Suspect]
     Route: 048
     Dates: start: 20040223, end: 20040223
  5. TACROLIMUS [Suspect]
     Route: 048
     Dates: start: 20040224, end: 20040224
  6. TACROLIMUS [Suspect]
     Route: 048
     Dates: start: 20040225, end: 20040225
  7. TACROLIMUS [Suspect]
     Route: 048
     Dates: start: 20040226, end: 20040227
  8. TACROLIMUS [Suspect]
     Route: 048
     Dates: start: 20040228
  9. TACROLIMUS [Suspect]
     Route: 048
     Dates: start: 20040229, end: 20040304
  10. TACROLIMUS [Suspect]
     Route: 048
     Dates: start: 20040306
  11. TACROLIMUS [Suspect]
     Route: 048
     Dates: start: 20040307
  12. TACROLIMUS [Suspect]
     Route: 048
     Dates: start: 20040308
  13. METHYLPREDNISOLONE [Suspect]
     Route: 065
     Dates: start: 20040222, end: 20040222
  14. PREDNISOLONE [Suspect]
     Route: 065
     Dates: start: 20040223, end: 20040223
  15. PREDNISOLONE [Suspect]
     Route: 065
     Dates: start: 20040224, end: 20040224
  16. PREDNISOLONE [Suspect]
     Route: 065
     Dates: start: 20040225, end: 20040225
  17. PREDNISOLONE [Suspect]
     Route: 065
     Dates: start: 20040226, end: 20040226
  18. PREDNISOLONE [Suspect]
     Route: 065
     Dates: start: 20040227, end: 20040228
  19. PREDNISOLONE [Suspect]
     Route: 065
     Dates: start: 20040229, end: 20040302
  20. PREDNISOLONE [Suspect]
     Route: 065
     Dates: start: 20040303, end: 20040303
  21. PREDNISOLONE [Suspect]
     Route: 065
     Dates: start: 20040304, end: 20040304
  22. PREDNISOLONE [Suspect]
     Route: 065
     Dates: start: 20040305, end: 20040305
  23. PREDNISOLONE [Suspect]
     Route: 065
     Dates: start: 20040306, end: 20040405
  24. MEROPENEM [Concomitant]
     Indication: INFECTION PROPHYLAXIS
     Dates: start: 20040221, end: 20040226
  25. METRONIDAZOLE [Concomitant]
     Dates: start: 20040305
  26. AMFOTERICINE [Concomitant]
     Indication: INFECTION PROPHYLAXIS
     Dates: start: 20040223, end: 20040301
  27. VANCOMYCIN [Concomitant]
     Indication: INFECTION PROPHYLAXIS
     Dates: start: 20040222, end: 20040225
  28. ANTI-FACTOR XA [Concomitant]
     Dosage: 2550- 1500 E
     Dates: start: 20040223
  29. CALCIUM SANDOZ [Concomitant]
     Dates: start: 20030305
  30. FUROSEMIDE [Concomitant]
     Dosage: AS NEEDED
     Dates: start: 20040227, end: 20040313
  31. ATENOLOL [Concomitant]
     Dosage: AS NEEDED
     Dates: start: 20040305
  32. PANTOPRAZOL [Concomitant]
     Indication: PROPHYLAXIS
     Dates: start: 20040223
  33. KETOGAN [Concomitant]
     Dosage: AS NEEDED
     Dates: start: 20040223
  34. METOPROLOL [Concomitant]
     Dosage: AS NEEDED
     Dates: start: 20040223
  35. PRECORTALON [Concomitant]
     Dates: start: 20040222
  36. ACTRAPID [Concomitant]
     Dosage: AS NEEDED
     Dates: start: 20040222, end: 20040224
  37. DALTEPARIN [Concomitant]
     Indication: THROMBOSIS PROPHYLAXIS
     Dosage: THERAPY WAS STOPPED 2 MAR 04; RESTARTED 3 MAR 04; STOPPED 4 MAR 04; RESTARTED 9 MAR 04.
     Dates: start: 20040223
  38. HEPARIN [Concomitant]
     Indication: VENA CAVA THROMBOSIS
     Dates: start: 20040304, end: 20040309
  39. ALBUMIN (HUMAN) [Concomitant]
     Dosage: THERAPY WAS STOPPED ON 29 FEB 04 AND RESTARTED ON 11 MAR 04.
     Dates: start: 20040228, end: 20040313
  40. ALBUMIN (HUMAN) [Concomitant]
     Route: 042
     Dates: start: 20040223, end: 20040223
  41. HETASTARCH 6% IN 0.9% SODIUM CHLORIDE IN PLASTIC CONTAINER [Concomitant]
     Dates: start: 20040223, end: 20040224

REACTIONS (11)
  - ABDOMINAL DISTENSION [None]
  - CARDIOVASCULAR DISORDER [None]
  - HEPATIC VEIN OCCLUSION [None]
  - HYPOVENTILATION [None]
  - INFLAMMATION [None]
  - JEJUNAL PERFORATION [None]
  - PERITONITIS [None]
  - POST PROCEDURAL COMPLICATION [None]
  - POST PROCEDURAL HAEMORRHAGE [None]
  - RENAL VEIN OCCLUSION [None]
  - VENA CAVA THROMBOSIS [None]
